FAERS Safety Report 19826581 (Version 4)
Quarter: 2021Q4

REPORT INFORMATION
  Report Type: Spontaneous
  Country: FR (occurrence: FR)
  Receive Date: 20210913
  Receipt Date: 20211221
  Transmission Date: 20220303
  Serious: Yes (Hospitalization)
  Sender: FDA-Public Use
  Company Number: None

PATIENT
  Age: 18 Year
  Sex: Male
  Weight: 58 kg

DRUGS (7)
  1. GEMCITABINE HYDROCHLORIDE [Suspect]
     Active Substance: GEMCITABINE HYDROCHLORIDE
     Indication: Hodgkin^s disease nodular sclerosis recurrent
     Dosage: 1400 MG, DAILY
     Route: 041
     Dates: start: 20210719, end: 20210722
  2. IFOSFAMIDE [Suspect]
     Active Substance: IFOSFAMIDE
     Indication: Hodgkin^s disease nodular sclerosis recurrent
     Dosage: 3500 MG, DAILY
     Route: 041
     Dates: start: 20210719, end: 20210722
  3. NAVELBINE [Suspect]
     Active Substance: VINORELBINE TARTRATE
     Indication: Hodgkin^s disease nodular sclerosis recurrent
     Dosage: 30 MG, CYCLICAL
     Route: 041
     Dates: start: 20210719, end: 20210719
  4. BACTRIM [Suspect]
     Active Substance: SULFAMETHOXAZOLE\TRIMETHOPRIM
     Indication: Infection prophylaxis
     Dosage: 2400 MG, WEEKLY (1/W) (800 MGX3/SEM)
     Route: 048
     Dates: start: 20200831, end: 20210727
  5. ALIZAPRIDE HYDROCHLORIDE [Concomitant]
     Active Substance: ALIZAPRIDE HYDROCHLORIDE
     Indication: Prophylaxis of nausea and vomiting
     Dosage: 50 MG, EVERY 8 HRS
     Route: 042
     Dates: start: 20210719, end: 20210723
  6. EMEND [Concomitant]
     Active Substance: APREPITANT
     Indication: Prophylaxis of nausea and vomiting
     Dosage: 125 MG, DAILY
     Route: 048
     Dates: start: 20210719, end: 20210719
  7. EMEND [Concomitant]
     Active Substance: APREPITANT
     Dosage: 80 MG, DAILY
     Route: 048
     Dates: start: 20210720, end: 20210722

REACTIONS (2)
  - Dermatitis [Recovering/Resolving]
  - Off label use [Unknown]

NARRATIVE: CASE EVENT DATE: 20210719
